FAERS Safety Report 15260138 (Version 1)
Quarter: 2018Q3

REPORT INFORMATION
  Report Type: Spontaneous
  Country: US (occurrence: US)
  Receive Date: 20180719
  Receipt Date: 20180719
  Transmission Date: 20181010
  Serious: Yes (Life-Threatening, Hospitalization)
  Sender: FDA-Public Use
  Company Number: None

PATIENT
  Age: 71 Year
  Sex: Male
  Weight: 77 kg

DRUGS (2)
  1. METHYLPREDNISOLONE SODIUM SUCCINATE. [Suspect]
     Active Substance: METHYLPREDNISOLONE SODIUM SUCCINATE
     Indication: CHRONIC OBSTRUCTIVE PULMONARY DISEASE
     Dosage: 125?60MG Q8H TO QDAY IV PUSH
     Route: 042
     Dates: start: 20180625, end: 20180628
  2. KETOROLAC [Suspect]
     Active Substance: KETOROLAC\KETOROLAC TROMETHAMINE
     Indication: BREAKTHROUGH PAIN
     Dosage: 15 MG Q6HPRN IV PUSH
     Route: 042
     Dates: start: 20180625, end: 20180628

REACTIONS (6)
  - Ileus paralytic [None]
  - Peritonitis [None]
  - Postoperative adhesion [None]
  - Abdominal pain [None]
  - Intestinal obstruction [None]
  - Abdominal pain upper [None]

NARRATIVE: CASE EVENT DATE: 20180629
